FAERS Safety Report 5469860-X (Version None)
Quarter: 2007Q3

REPORT INFORMATION
  Report Type: 
  Country: None (occurrence: None)
  Receive Date: 20070927
  Receipt Date: 20070912
  Transmission Date: 20080115
  Serious: Yes (Disabling, Other)
  Sender: FDA-Public Use
  Company Number: US-ELI_LILLY_AND_COMPANY-US200708004329

PATIENT
  Age: 68 Year
  Sex: Female
  Weight: 72.108 kg

DRUGS (6)
  1. CALCIUM WITH VITAMIN D [Concomitant]
     Dosage: 600 UNK, DAILY (1/D)
  2. CALCIUM WITH VITAMIN D [Concomitant]
     Dosage: 400 UNK, DAILY (1/D)
  3. ZYRTEC [Concomitant]
     Indication: HYPERSENSITIVITY
     Dosage: 10 MG, EACH EVENING
  4. ASPIRIN [Concomitant]
     Dosage: 81 MG, DAILY (1/D)
  5. SYNTHROID [Concomitant]
     Dosage: 50 MG, DAILY (1/D)
  6. EVISTA [Suspect]
     Indication: OSTEOPOROSIS
     Dosage: 60 MG, UNK
     Route: 048

REACTIONS (3)
  - DEEP VEIN THROMBOSIS [None]
  - PANCREATIC CARCINOMA METASTATIC [None]
  - PULMONARY EMBOLISM [None]
